FAERS Safety Report 6716157-3 (Version None)
Quarter: 2010Q2

REPORT INFORMATION
  Report Type: 
  Country: None (occurrence: None)
  Receive Date: 20100506
  Receipt Date: 20100506
  Transmission Date: 20101027
  Serious: Yes (Hospitalization)
  Sender: FDA-Public Use
  Company Number: None

PATIENT
  Age: 50 Year
  Sex: 0
  Weight: 85.3 kg

DRUGS (1)
  1. PRAVASTATIN [Suspect]
     Indication: HYPERLIPIDAEMIA
     Dosage: 80 MG HS PO
     Route: 048
     Dates: start: 20090924, end: 20100319

REACTIONS (2)
  - MYALGIA [None]
  - RENAL FAILURE ACUTE [None]
